FAERS Safety Report 4784996-4 (Version None)
Quarter: 2005Q3

REPORT INFORMATION
  Report Type: 
  Country: None (occurrence: None)
  Receive Date: 20050928
  Receipt Date: 20050919
  Transmission Date: 20060218
  Serious: Yes (Other)
  Sender: FDA-Public Use
  Company Number: S05-USA-04044-01

PATIENT
  Age: 45 Year
  Sex: Female
  Weight: 56.6996 kg

DRUGS (4)
  1. LEXAPRO [Suspect]
     Indication: BIPOLAR I DISORDER
     Dosage: 10 MG QD PO
     Route: 048
     Dates: start: 20050730, end: 20050805
  2. LEXAPRO [Suspect]
     Indication: BIPOLAR I DISORDER
     Dosage: 20 MG QD PO
     Route: 048
     Dates: start: 20050806
  3. ABILIFY [Suspect]
     Indication: BIPOLAR I DISORDER
     Dosage: 20 MG QD
     Dates: end: 20050822
  4. KLONOPIN [Concomitant]

REACTIONS (4)
  - BULIMIA NERVOSA [None]
  - DEPRESSION [None]
  - RESTLESSNESS [None]
  - WEIGHT INCREASED [None]
